FAERS Safety Report 19732772 (Version 1)
Quarter: 2021Q3

REPORT INFORMATION
  Report Type: Spontaneous
  Country: US (occurrence: US)
  Receive Date: 20210821
  Receipt Date: 20210821
  Transmission Date: 20211014
  Serious: No
  Sender: FDA-Public Use
  Company Number: None

PATIENT
  Age: 67 Year
  Sex: Female
  Weight: 63.9 kg

DRUGS (5)
  1. MIRTAZAPINE 15MG [Concomitant]
     Active Substance: MIRTAZAPINE
  2. OXYCODONE [Concomitant]
     Active Substance: OXYCODONE
  3. GABAPENTIN 300MG [Concomitant]
     Active Substance: GABAPENTIN
  4. CAPECITABINE. [Suspect]
     Active Substance: CAPECITABINE
     Indication: COLON CANCER
     Dosage: ?          OTHER FREQUENCY:BID X14DAYS, 7 OFF;?
     Route: 048
     Dates: start: 20210722
  5. VITAMIN A +D [Concomitant]

REACTIONS (3)
  - Erythema [None]
  - Skin exfoliation [None]
  - Pain in extremity [None]

NARRATIVE: CASE EVENT DATE: 20210812
